FAERS Safety Report 5448406-6 (Version None)
Quarter: 2007Q3

REPORT INFORMATION
  Report Type: 
  Country: None (occurrence: None)
  Receive Date: 20070911
  Receipt Date: 20070905
  Transmission Date: 20080115
  Serious: Yes (Other)
  Sender: FDA-Public Use
  Company Number: JP-BAYER-200710554BYL

PATIENT
  Age: 41 Year
  Sex: Female

DRUGS (6)
  1. AVELOX [Suspect]
     Indication: TONSILLITIS
     Dosage: TOTAL DAILY DOSE: 400 MG  UNIT DOSE: 400 MG
     Route: 048
     Dates: start: 20070727, end: 20070803
  2. PL [Concomitant]
     Indication: TONSILLITIS
     Dosage: TOTAL DAILY DOSE: 3 G
     Route: 048
     Dates: start: 20070727, end: 20070806
  3. PECTITE [Concomitant]
     Indication: TONSILLITIS
     Dosage: TOTAL DAILY DOSE: 300 MG
     Route: 048
     Dates: start: 20070727, end: 20070806
  4. COUGHCODE-N [Concomitant]
     Indication: TONSILLITIS
     Route: 048
     Dates: start: 20070727, end: 20070806
  5. TSUMURA NO.29 [Concomitant]
     Indication: TONSILLITIS
     Dosage: TOTAL DAILY DOSE: 6 G
     Route: 048
     Dates: start: 20070731, end: 20070806
  6. DASEN [Concomitant]
     Indication: TONSILLITIS
     Dosage: TOTAL DAILY DOSE: 30 MG
     Route: 048
     Dates: start: 20070729, end: 20070806

REACTIONS (4)
  - ELECTROCARDIOGRAM QT PROLONGED [None]
  - HEART RATE IRREGULAR [None]
  - PALPITATIONS [None]
  - VENTRICULAR EXTRASYSTOLES [None]
